FAERS Safety Report 4915340-7 (Version None)
Quarter: 2006Q1

REPORT INFORMATION
  Report Type: 
  Country: None (occurrence: None)
  Receive Date: 20060217
  Receipt Date: 20060201
  Transmission Date: 20060701
  Serious: Yes (Life-Threatening)
  Sender: FDA-Public Use
  Company Number: PT-SANOFI-SYNTHELABO-A01200601125

PATIENT
  Sex: Female
  Weight: 63 kg

DRUGS (5)
  1. ELOXATIN [Suspect]
     Indication: RECTAL CANCER
     Route: 042
     Dates: start: 20060105
  2. AMIODARONE HCL [Concomitant]
     Route: 048
  3. CAPECITABINE [Concomitant]
     Indication: RECTAL CANCER
     Route: 048
     Dates: start: 20051017
  4. ALPRAZOLAM [Concomitant]
     Route: 048
  5. SIMVASTATIN [Concomitant]
     Route: 048

REACTIONS (5)
  - BLOOD PRESSURE DECREASED [None]
  - FEELING HOT [None]
  - HYPERHIDROSIS [None]
  - LOSS OF CONSCIOUSNESS [None]
  - TREMOR [None]
